FAERS Safety Report 9058486 (Version 1)
Quarter: 2013Q1

REPORT INFORMATION
  Report Type: Spontaneous
  Country: US (occurrence: None)
  Receive Date: 20130205
  Receipt Date: 20130205
  Transmission Date: 20140127
  Serious: No
  Sender: FDA-Public Use
  Company Number: None

PATIENT
  Age: 39 Year
  Sex: Female
  Weight: 60.33 kg

DRUGS (1)
  1. INVEGA SUSTENNA 156MG [Suspect]
     Indication: PSYCHOTIC DISORDER
     Route: 030
     Dates: start: 20121214, end: 20121214

REACTIONS (3)
  - Musculoskeletal stiffness [None]
  - Movement disorder [None]
  - Anxiety [None]
